FAERS Safety Report 20887324 (Version 3)
Quarter: 2023Q1

REPORT INFORMATION
  Report Type: Report from Study
  Country: BR (occurrence: BR)
  Receive Date: 20220528
  Receipt Date: 20230329
  Transmission Date: 20230418
  Serious: Yes (Other)
  Sender: FDA-Public Use
  Company Number: BR-JNJFOC-20220526994

PATIENT
  Age: 68 Year
  Sex: Female
  Weight: 75 kg

DRUGS (18)
  1. INFLIXIMAB [Suspect]
     Active Substance: INFLIXIMAB
     Indication: Rheumatoid arthritis
     Dosage: 5 AMPOLES/VIALS
     Route: 041
     Dates: start: 2020
  2. INFLIXIMAB [Suspect]
     Active Substance: INFLIXIMAB
     Dosage: 5 AMPOLES/VIALS - MONTHLY INTERVAL
     Route: 041
  3. INFLIXIMAB [Suspect]
     Active Substance: INFLIXIMAB
     Route: 041
  4. INFLIXIMAB [Suspect]
     Active Substance: INFLIXIMAB
     Dosage: 7 AMPOULES
     Route: 041
  5. REMICADE [Suspect]
     Active Substance: INFLIXIMAB
     Indication: Rheumatoid arthritis
     Dosage: 3 AMPOLES A WEEK 0, 2 AND 6 AND AFTER EVERY 8
     Route: 041
     Dates: start: 20210205, end: 20220322
  6. REMICADE [Suspect]
     Active Substance: INFLIXIMAB
     Indication: Ankylosing spondylitis
  7. REMICADE [Suspect]
     Active Substance: INFLIXIMAB
     Indication: Crohn^s disease
  8. REMICADE [Suspect]
     Active Substance: INFLIXIMAB
     Indication: Psoriasis
  9. REMICADE [Suspect]
     Active Substance: INFLIXIMAB
     Indication: Psoriatic arthropathy
  10. REMICADE [Suspect]
     Active Substance: INFLIXIMAB
     Indication: Rheumatoid arthritis
  11. METHOTREXATE [Concomitant]
     Active Substance: METHOTREXATE
  12. SIMVASTATIN [Concomitant]
     Active Substance: SIMVASTATIN
  13. ENALAPRIL [Concomitant]
     Active Substance: ENALAPRIL
  14. ATENOLOL [Concomitant]
     Active Substance: ATENOLOL
  15. PREDNISONE [Concomitant]
     Active Substance: PREDNISONE
  16. ACETAMINOPHEN [Concomitant]
     Active Substance: ACETAMINOPHEN
  17. OCUPRESS [DORZOLAMIDE HYDROCHLORIDE] [Concomitant]
  18. DIAZOX [DICLOFENAC SODIUM;PARACETAMOL] [Concomitant]

REACTIONS (8)
  - Glaucoma [Unknown]
  - Cataract [Unknown]
  - Rheumatoid arthritis [Unknown]
  - Eye infection [Recovering/Resolving]
  - Eye disorder [Unknown]
  - Influenza [Not Recovered/Not Resolved]
  - Back pain [Unknown]
  - Off label use [Unknown]

NARRATIVE: CASE EVENT DATE: 20220315
